FAERS Safety Report 24195617 (Version 1)
Quarter: 2024Q3

REPORT INFORMATION
  Report Type: Spontaneous
  Country: ES (occurrence: None)
  Receive Date: 20240809
  Receipt Date: 20240809
  Transmission Date: 20241017
  Serious: Yes (Other)
  Sender: ASTRAZENECA
  Company Number: 2024A177831

PATIENT
  Age: 74 Year
  Sex: Male

DRUGS (2)
  1. DURVALUMAB [Suspect]
     Active Substance: DURVALUMAB
     Indication: Rectal neoplasm
  2. FLUOROURACIL\LEUCOVORIN CALCIUM\OXALIPLATIN [Concomitant]
     Active Substance: FLUOROURACIL\LEUCOVORIN CALCIUM\OXALIPLATIN
     Dates: start: 202204

REACTIONS (5)
  - Systemic scleroderma [Unknown]
  - Idiopathic inflammatory myopathy [Unknown]
  - Polyarthritis [Unknown]
  - Mucosal inflammation [Unknown]
  - Off label use [Unknown]
